FAERS Safety Report 10337971 (Version 1)
Quarter: 2014Q3

REPORT INFORMATION
  Report Type: Spontaneous
  Country: GB (occurrence: GB)
  Receive Date: 20140724
  Receipt Date: 20140724
  Transmission Date: 20150326
  Serious: Yes (Other)
  Sender: FDA-Public Use
  Company Number: PHFR2014GB005113

PATIENT
  Sex: Female

DRUGS (4)
  1. CLOZARIL [Suspect]
     Active Substance: CLOZAPINE
     Dosage: 200MG, (75 MG / 125MG)
     Route: 048
  2. CLOZARIL [Suspect]
     Active Substance: CLOZAPINE
     Dosage: 200 MG, (50 MG / 150 MG)
     Route: 048
  3. CLOZARIL [Suspect]
     Active Substance: CLOZAPINE
     Indication: SCHIZOPHRENIA
     Dosage: UNK
     Route: 048
     Dates: start: 20140522
  4. CLOZARIL [Suspect]
     Active Substance: CLOZAPINE
     Dosage: 100 MG, BID (AT 12 PM AND AT 10 PM)
     Route: 048

REACTIONS (6)
  - Tooth disorder [Unknown]
  - Antipsychotic drug level below therapeutic [Unknown]
  - Neutrophil count increased [Not Recovered/Not Resolved]
  - Juvenile idiopathic arthritis [Unknown]
  - White blood cell count increased [Not Recovered/Not Resolved]
  - Body mass index decreased [Unknown]
